FAERS Safety Report 5038223-3 (Version None)
Quarter: 2006Q2

REPORT INFORMATION
  Report Type: 
  Country: None (occurrence: None)
  Receive Date: 20060629
  Receipt Date: 20060623
  Transmission Date: 20061013
  Serious: Yes (Other)
  Sender: FDA-Public Use
  Company Number: JP-SP-2006-01594

PATIENT
  Age: 82 Year
  Sex: Male

DRUGS (2)
  1. IMMUCYST [Suspect]
     Indication: CARCINOMA IN SITU OF BLADDER
     Route: 043
     Dates: start: 20051027, end: 20060225
  2. IMMUCYST [Suspect]
     Route: 043
     Dates: start: 20051027, end: 20060225

REACTIONS (2)
  - BLADDER PAIN [None]
  - CYSTITIS [None]
